FAERS Safety Report 19745545 (Version 2)
Quarter: 2021Q3

REPORT INFORMATION
  Report Type: Spontaneous
  Country: IN (occurrence: IN)
  Receive Date: 20210825
  Receipt Date: 20210927
  Transmission Date: 20211014
  Serious: Yes (Other)
  Sender: FDA-Public Use
  Company Number: IN-PFIZER INC-202101042721

PATIENT
  Age: 59 Year
  Sex: Female
  Weight: 54 kg

DRUGS (4)
  1. FULVESTRANT. [Concomitant]
     Active Substance: FULVESTRANT
     Dosage: 250 MG (X 2 DOSES ONE DOSE IN EACH BUTTOCK)
     Route: 030
  2. ZINCOVIT [ASCORBIC ACID;RETINOL;TOCOPHEROL;ZINC] [Concomitant]
     Dosage: X?1?X
     Route: 048
  3. PAN D [CAMPHOR;GLYCEROL;MENTHOL;ZINC OXIDE] [Concomitant]
     Dosage: 1?X?X
     Route: 048
  4. PALBACE [Suspect]
     Active Substance: PALBOCICLIB
     Dosage: 125 MG, OD
     Route: 048
     Dates: start: 20200926

REACTIONS (5)
  - Blood calcium decreased [Unknown]
  - Neoplasm progression [Unknown]
  - Early satiety [Unknown]
  - Decreased appetite [Unknown]
  - Off label use [Unknown]
